FAERS Safety Report 6195997-6 (Version None)
Quarter: 2009Q2

REPORT INFORMATION
  Report Type: 
  Country: None (occurrence: None)
  Receive Date: 20090520
  Receipt Date: 20070411
  Transmission Date: 20091009
  Serious: Yes (Hospitalization, Other)
  Sender: FDA-Public Use
  Company Number: US-ASTRAZENECA-2006UW07725

PATIENT
  Age: 444 Month
  Sex: Male
  Weight: 117.8 kg

DRUGS (43)
  1. SEROQUEL [Suspect]
     Indication: BIPOLAR DISORDER
     Route: 048
     Dates: start: 20010517, end: 20050307
  2. SEROQUEL [Suspect]
     Indication: PSYCHOTIC DISORDER
     Route: 048
     Dates: start: 20010517, end: 20050307
  3. SEROQUEL [Suspect]
     Dosage: 100 MG TO 1200 MG
     Route: 048
     Dates: start: 20000803
  4. SEROQUEL [Suspect]
     Dosage: 100 MG TO 1200 MG
     Route: 048
     Dates: start: 20000803
  5. ABILIFY [Concomitant]
     Route: 065
  6. CLOZARIL [Concomitant]
     Route: 065
     Dates: start: 20051217
  7. GEODON [Concomitant]
     Route: 065
     Dates: start: 20061129
  8. HALDOL [Concomitant]
     Route: 065
  9. NAVANE [Concomitant]
     Route: 065
  10. RISPERDAL [Concomitant]
     Route: 065
  11. THORAZINE [Concomitant]
     Route: 065
     Dates: start: 19850111
  12. TRILAFON [Concomitant]
     Route: 065
  13. ZYPREXA [Concomitant]
     Route: 065
  14. LUNESTA [Concomitant]
     Route: 065
     Dates: start: 20061129
  15. LITHIUM [Concomitant]
     Route: 065
     Dates: start: 19840710
  16. KLONOPIN [Concomitant]
     Indication: ANXIETY
     Dosage: 0.5 MG-1.5 MG
     Route: 048
  17. KLONOPIN [Concomitant]
     Indication: INSOMNIA
     Dosage: 0.5 MG-1.5 MG
     Route: 048
  18. POTASSIUM CHLORIDE CER [Concomitant]
     Dosage: 10 MEQ=1 CER EVERY MONDAY, WEDNESDAY, FRIDAY
     Route: 048
  19. HYDROCORTISONE CRE 1 PERCENT [Concomitant]
     Route: 061
  20. IBUPROFEN [Concomitant]
     Indication: PAIN
     Route: 048
  21. TYLENOL [Concomitant]
     Indication: PAIN
     Route: 048
  22. MAALOX SUS [Concomitant]
     Indication: DYSPEPSIA
     Route: 048
  23. BISACODYL ECT [Concomitant]
     Indication: CONSTIPATION
     Dosage: 5-10 MG
     Route: 048
  24. WELLBUTRIN XL [Concomitant]
     Indication: DEPRESSION
     Dosage: 75-300 MG
     Route: 048
  25. ATIVAN [Concomitant]
     Indication: ANXIETY
     Route: 048
  26. ATIVAN [Concomitant]
     Indication: AGITATION
     Route: 048
  27. TRIAVIL [Concomitant]
     Indication: MOOD ALTERED
     Dosage: 4/25 TWO TIMES A DAY
     Route: 065
  28. TRIAVIL [Concomitant]
     Indication: ANXIETY
     Dosage: 4/25 TWO TIMES A DAY
     Route: 065
  29. AMBIEN [Concomitant]
     Indication: INSOMNIA
     Route: 048
  30. CELEXA [Concomitant]
     Indication: DEPRESSION
     Route: 065
  31. TRAZODONE HCL [Concomitant]
     Dosage: 50 MG 1 OR 2 AT NIGHT
     Route: 065
  32. COGENTIN [Concomitant]
     Indication: SALIVARY HYPERSECRETION
     Route: 065
  33. TAGAMET [Concomitant]
     Route: 048
  34. DIPHENHYDRAMINE HCL [Concomitant]
     Route: 065
  35. NAPROSYN [Concomitant]
     Indication: PAIN
     Route: 048
  36. FLEXERIL [Concomitant]
     Indication: MUSCLE SPASMS
     Route: 048
  37. TRIAMCINOLONE ACETONIDE 0.025 PERCENT [Concomitant]
     Dosage: 1 CREA EX TWO TIMES A DAY
     Route: 065
     Dates: end: 20051121
  38. METFORMIN HCL [Concomitant]
     Route: 065
  39. DEPAKOTE ER [Concomitant]
     Dosage: 500-2000 MG, TER DAILY
     Route: 048
  40. ZANTAC [Concomitant]
     Route: 048
  41. TRICOR [Concomitant]
     Route: 065
  42. ZITHROMAX Z [Concomitant]
     Route: 065
  43. STELAZINE [Concomitant]
     Indication: PARANOIA
     Route: 065
     Dates: start: 20050927

REACTIONS (14)
  - ABDOMINAL PAIN [None]
  - BIPOLAR DISORDER [None]
  - BRONCHITIS [None]
  - CONVULSION [None]
  - DIABETES MELLITUS [None]
  - DYSPEPSIA [None]
  - EPIDIDYMITIS [None]
  - HYPOKALAEMIA [None]
  - PARANOIA [None]
  - POLYCYTHAEMIA [None]
  - PSYCHOTIC DISORDER [None]
  - SCHIZOAFFECTIVE DISORDER [None]
  - SINUS TACHYCARDIA [None]
  - SUICIDAL IDEATION [None]
